FAERS Safety Report 9906859 (Version 2)
Quarter: 2014Q1

REPORT INFORMATION
  Report Type: Spontaneous
  Country: US (occurrence: US)
  Receive Date: 20140218
  Receipt Date: 20140218
  Transmission Date: 20141002
  Serious: No
  Sender: FDA-Public Use
  Company Number: US-GILEAD-2012-0053870

PATIENT
  Age: 71 Year
  Sex: Female

DRUGS (16)
  1. LETAIRIS [Suspect]
     Indication: PULMONARY HYPERTENSION
     Dosage: 5 UNK, UNK
     Route: 048
     Dates: start: 20120322, end: 20120330
  2. LETAIRIS [Suspect]
     Indication: SYSTEMIC SCLEROSIS
     Dosage: 5 MG, UNK
     Route: 048
     Dates: end: 20120418
  3. LETAIRIS [Suspect]
     Indication: MITRAL VALVE INCOMPETENCE
  4. LETAIRIS [Suspect]
     Indication: DIASTOLIC DYSFUNCTION
  5. CALCIUM D                          /00944201/ [Concomitant]
  6. VITAMIN D                          /00107901/ [Concomitant]
  7. FOSAMAX [Concomitant]
  8. ASPIRIN CHILDREN [Concomitant]
  9. PREDNISONE [Concomitant]
  10. CLINDAMYCIN HCL [Concomitant]
  11. FUROSEMIDE [Concomitant]
  12. OCUVITE                            /01053801/ [Concomitant]
  13. MINOCYCLINE HCL [Concomitant]
  14. TETRACYCLINE HCL [Concomitant]
  15. OXYGEN [Concomitant]
  16. PRILOSEC                           /00661201/ [Concomitant]

REACTIONS (7)
  - Unevaluable event [Unknown]
  - Fatigue [Unknown]
  - Somnolence [Unknown]
  - Pyrexia [Unknown]
  - Chills [Unknown]
  - Cough [Unknown]
  - Asthenia [Unknown]
